FAERS Safety Report 4365869-8 (Version None)
Quarter: 2004Q2

REPORT INFORMATION
  Report Type: 
  Country: None (occurrence: None)
  Receive Date: 20040526
  Receipt Date: 20040526
  Transmission Date: 20050107
  Serious: No
  Sender: FDA-Public Use
  Company Number: None

PATIENT
  Sex: Male

DRUGS (1)
  1. TRISEPTIN WATERLESS SURGICAL SCRUB MFR: HEALTH POINT, LTD [Suspect]
     Dates: start: 20040318

REACTIONS (11)
  - AGITATION [None]
  - CEREBROVASCULAR ACCIDENT [None]
  - COGNITIVE DISORDER [None]
  - DISSOCIATION [None]
  - EYE PAIN [None]
  - HEADACHE [None]
  - HYPOAESTHESIA [None]
  - NERVOUS SYSTEM DISORDER [None]
  - PARAESTHESIA [None]
  - PAROSMIA [None]
  - RESPIRATORY RATE INCREASED [None]
